FAERS Safety Report 6641480-0 (Version None)
Quarter: 2010Q1

REPORT INFORMATION
  Report Type: 
  Country: None (occurrence: None)
  Receive Date: 20100318
  Receipt Date: 20100311
  Transmission Date: 20100710
  Serious: Yes (Hospitalization, Other)
  Sender: FDA-Public Use
  Company Number: US-MERCK-0802USA00131

PATIENT
  Age: 51 Year
  Sex: Female
  Weight: 75 kg

DRUGS (6)
  1. FOSAMAX [Suspect]
     Indication: OSTEOPOROSIS
     Route: 048
     Dates: start: 20010705, end: 20040801
  2. BENICAR [Concomitant]
     Indication: BLOOD PRESSURE
     Route: 065
     Dates: start: 20010101, end: 20041201
  3. VYTORIN [Concomitant]
     Indication: BLOOD CHOLESTEROL
     Route: 065
     Dates: start: 20010101, end: 20041201
  4. SYNTHROID [Concomitant]
     Indication: THYROID DISORDER
     Route: 065
     Dates: start: 20010101, end: 20041201
  5. RANEXA [Concomitant]
     Indication: CARDIAC DISORDER
     Route: 065
     Dates: start: 20010101, end: 20041201
  6. TAMBOCOR [Concomitant]
     Indication: CARDIAC DISORDER
     Route: 065
     Dates: start: 20010101, end: 20041201

REACTIONS (36)
  - ACUTE SINUSITIS [None]
  - AMNESIA [None]
  - ANGINA PECTORIS [None]
  - ARTHROPOD BITE [None]
  - ATRIAL FIBRILLATION [None]
  - CHEST PAIN [None]
  - CHOLELITHIASIS [None]
  - CHRONIC OBSTRUCTIVE PULMONARY DISEASE [None]
  - CORONARY ARTERY DISEASE [None]
  - DENTAL CARIES [None]
  - DEPRESSION [None]
  - DYSPNOEA EXERTIONAL [None]
  - GASTRITIS [None]
  - GINGIVAL BLEEDING [None]
  - GINGIVAL INFECTION [None]
  - GINGIVITIS [None]
  - HYPERLIPIDAEMIA [None]
  - HYPERTENSION [None]
  - HYPERTENSIVE HEART DISEASE [None]
  - HYPERTHYROIDISM [None]
  - HYPOTHYROIDISM [None]
  - INSOMNIA [None]
  - LOSS OF CONSCIOUSNESS [None]
  - MIGRAINE [None]
  - NON-CARDIAC CHEST PAIN [None]
  - OESOPHAGITIS [None]
  - ORAL INFECTION [None]
  - OSTEONECROSIS [None]
  - OTITIS MEDIA [None]
  - PANIC ATTACK [None]
  - POLLAKIURIA [None]
  - REFLUX OESOPHAGITIS [None]
  - RESTLESS LEGS SYNDROME [None]
  - SLEEP APNOEA SYNDROME [None]
  - URINARY TRACT INFECTION [None]
  - WEIGHT DECREASED [None]
